FAERS Safety Report 17427714 (Version 2)
Quarter: 2020Q2

REPORT INFORMATION
  Report Type: Report from Study
  Country: US (occurrence: US)
  Receive Date: 20200218
  Receipt Date: 20200401
  Transmission Date: 20200713
  Serious: Yes (Hospitalization)
  Sender: FDA-Public Use
  Company Number: US-ROCHE-2548072

PATIENT
  Sex: Female
  Weight: 70.82 kg

DRUGS (3)
  1. RITUXAN [Suspect]
     Active Substance: RITUXIMAB
     Indication: ARTHRITIS
     Route: 042
     Dates: start: 20100101
  2. RITUXAN [Suspect]
     Active Substance: RITUXIMAB
     Route: 042
     Dates: start: 20051019, end: 20190619
  3. ATORVASTATIN [Concomitant]
     Active Substance: ATORVASTATIN
     Route: 048
     Dates: start: 2005

REACTIONS (5)
  - Spinal compression fracture [Not Recovered/Not Resolved]
  - Fall [Recovering/Resolving]
  - Pneumonia [Recovered/Resolved]
  - Urinary tract infection [Recovered/Resolved]
  - Asthenia [Not Recovered/Not Resolved]
